FAERS Safety Report 16451469 (Version 2)
Quarter: 2019Q3

REPORT INFORMATION
  Report Type: Spontaneous
  Country: IT (occurrence: IT)
  Receive Date: 20190619
  Receipt Date: 20190701
  Transmission Date: 20191004
  Serious: Yes (Life-Threatening)
  Sender: FDA-Public Use
  Company Number: IT-MYLANLABS-2019M1056961

PATIENT
  Age: 59 Year
  Sex: Male
  Weight: 75 kg

DRUGS (1)
  1. TADALAFIL. [Suspect]
     Active Substance: TADALAFIL
     Indication: PREMATURE EJACULATION
     Dosage: 5 MILLIGRAM, Q2D
     Route: 048
     Dates: start: 20181201

REACTIONS (2)
  - Loss of consciousness [Unknown]
  - Vertigo [Unknown]

NARRATIVE: CASE EVENT DATE: 20181230
